FAERS Safety Report 5009300-8 (Version None)
Quarter: 2006Q2

REPORT INFORMATION
  Report Type: 
  Country: None (occurrence: None)
  Receive Date: 20060524
  Receipt Date: 20051101
  Transmission Date: 20061013
  Serious: Yes (Other)
  Sender: FDA-Public Use
  Company Number: JP-BRISTOL-MYERS SQUIBB COMPANY-13162979

PATIENT
  Age: 71 Year
  Sex: Female

DRUGS (3)
  1. DOXORUBICIN HCL [Suspect]
     Indication: UTERINE CANCER
     Route: 042
     Dates: start: 20040921, end: 20040921
  2. PARAPLATIN [Suspect]
     Indication: UTERINE CANCER
     Route: 042
     Dates: start: 20040925, end: 20041124
  3. TAXOL [Suspect]
     Indication: UTERINE CANCER
     Route: 042
     Dates: start: 20040922, end: 20041124

REACTIONS (1)
  - DEEP VEIN THROMBOSIS [None]
